FAERS Safety Report 6541304-6 (Version None)
Quarter: 2010Q1

REPORT INFORMATION
  Report Type: 
  Country: None (occurrence: None)
  Receive Date: 20100118
  Receipt Date: 20100108
  Transmission Date: 20100710
  Serious: Yes (Hospitalization, Other)
  Sender: FDA-Public Use
  Company Number: US-ABBOTT-10P-163-0618325-00

PATIENT
  Sex: Male
  Weight: 64.468 kg

DRUGS (2)
  1. HUMIRA [Suspect]
     Indication: CROHN'S DISEASE
     Route: 058
     Dates: start: 20070412, end: 20090701
  2. MERCAPTOPURINE [Concomitant]
     Indication: CROHN'S DISEASE
     Dates: start: 20040101, end: 20080301

REACTIONS (9)
  - ABSCESS INTESTINAL [None]
  - COUGH [None]
  - CROHN'S DISEASE [None]
  - FATIGUE [None]
  - LOCAL SWELLING [None]
  - NIGHT SWEATS [None]
  - SMALL INTESTINAL OBSTRUCTION [None]
  - T-CELL LYMPHOMA [None]
  - WEIGHT DECREASED [None]
